FAERS Safety Report 5842765-8 (Version None)
Quarter: 2008Q3

REPORT INFORMATION
  Report Type: 
  Country: None (occurrence: None)
  Receive Date: 20080811
  Receipt Date: 20080729
  Transmission Date: 20090109
  Serious: Yes (Death, Hospitalization, Other)
  Sender: FDA-Public Use
  Company Number: 2008BI011860

PATIENT
  Sex: Female

DRUGS (7)
  1. AVONEX [Suspect]
     Indication: MULTIPLE SCLEROSIS
     Dosage: 30 UG; QW; IM
     Route: 030
     Dates: start: 20041110
  2. METHADONE HCL [Concomitant]
  3. NEURONTIN [Concomitant]
  4. NORCO [Concomitant]
  5. NORVASC [Concomitant]
  6. TYLENOL [Concomitant]
  7. LASIX [Concomitant]

REACTIONS (24)
  - ABSCESS [None]
  - ATELECTASIS [None]
  - CELLULITIS [None]
  - DECUBITUS ULCER [None]
  - DISEASE COMPLICATION [None]
  - DYSPHAGIA [None]
  - FAT NECROSIS [None]
  - HYPERTENSION [None]
  - HYPOGLYCAEMIA [None]
  - HYPOTONIA [None]
  - PANNICULITIS [None]
  - PLEURAL EFFUSION [None]
  - PNEUMONIA [None]
  - POST HERPETIC NEURALGIA [None]
  - PROTEUS INFECTION [None]
  - PSEUDOMONAS INFECTION [None]
  - PULMONARY HYPERTENSION [None]
  - PULMONARY OEDEMA [None]
  - RESPIRATORY FAILURE [None]
  - SEPSIS [None]
  - SINUS TACHYCARDIA [None]
  - TINEA INFECTION [None]
  - UNRESPONSIVE TO STIMULI [None]
  - URINARY TRACT INFECTION [None]
